FAERS Safety Report 9284920 (Version 2)
Quarter: 2013Q3

REPORT INFORMATION
  Report Type: Report from Study
  Country: DK (occurrence: DK)
  Receive Date: 20130513
  Receipt Date: 20130808
  Transmission Date: 20140515
  Serious: Yes (Life-Threatening, Other)
  Sender: FDA-Public Use
  Company Number: DK-PFIZER INC-2011300768

PATIENT
  Age: 66 Year
  Sex: Male
  Weight: 174 kg

DRUGS (8)
  1. TOFACITINIB CITRATE [Suspect]
     Indication: PSORIASIS
     Dosage: 10 MG, 2X/DAY
     Route: 048
     Dates: start: 20110825, end: 20111104
  2. TOFACITINIB CITRATE [Suspect]
     Dosage: 10 MG, 1X/DAY
     Route: 048
     Dates: start: 20111105, end: 20111105
  3. TOFACITINIB CITRATE [Suspect]
     Dosage: 10 MG, 2X/DAY
     Route: 048
     Dates: start: 20111106, end: 20111112
  4. TOFACITINIB CITRATE [Suspect]
     Dosage: 10 MG, 1X/DAY
     Route: 048
     Dates: start: 20111113, end: 20111113
  5. TOFACITINIB CITRATE [Suspect]
     Dosage: 10 MG, 2X/DAY
     Route: 048
     Dates: start: 20111114, end: 20111127
  6. SIMVASTATIN [Concomitant]
     Indication: BLOOD CHOLESTEROL INCREASED
     Dosage: 20 MG, 1X/DAY
     Route: 048
  7. METFORMIN HYDROCHLORIDE [Concomitant]
     Indication: DIABETES MELLITUS
     Dosage: 500 MG, 1X/DAY
     Route: 048
     Dates: start: 20090801
  8. RAMIPRIL [Concomitant]
     Indication: HYPERTENSION
     Dosage: 5 MG, 1X/DAY
     Route: 048
     Dates: start: 20090801

REACTIONS (1)
  - Prostate cancer [Not Recovered/Not Resolved]
